FAERS Safety Report 9717450 (Version 1)
Quarter: 2013Q4

REPORT INFORMATION
  Report Type: Spontaneous
  Country: US (occurrence: US)
  Receive Date: 20131127
  Receipt Date: 20131127
  Transmission Date: 20140711
  Serious: No
  Sender: FDA-Public Use
  Company Number: US-GILEAD-2009-0019746

PATIENT
  Age: 76 Year
  Sex: Female
  Weight: 90.72 kg

DRUGS (10)
  1. LETAIRIS [Suspect]
     Indication: PULMONARY ARTERIAL HYPERTENSION
     Route: 048
     Dates: start: 20081216, end: 20081223
  2. PROPAFENONE [Concomitant]
  3. LOTREL [Concomitant]
  4. IMDUR [Concomitant]
  5. TORSEMIDE [Concomitant]
  6. PRIMIDONE [Concomitant]
  7. SYNTHROID [Concomitant]
  8. GLIPIZIDE [Concomitant]
  9. NOVOLOG MIX [Concomitant]
  10. K-DUR [Concomitant]

REACTIONS (4)
  - Dizziness [Not Recovered/Not Resolved]
  - Local swelling [Not Recovered/Not Resolved]
  - Nasal congestion [Not Recovered/Not Resolved]
  - Dyspnoea [Not Recovered/Not Resolved]
